FAERS Safety Report 7400610-3 (Version None)
Quarter: 2011Q1

REPORT INFORMATION
  Report Type: 
  Country: None (occurrence: None)
  Receive Date: 20110329
  Receipt Date: 20110318
  Transmission Date: 20110831
  Serious: Yes (Hospitalization)
  Sender: FDA-Public Use
  Company Number: B0707168A

PATIENT
  Age: 44 Year
  Sex: Female

DRUGS (5)
  1. EPOPROSTENOL SODIUM [Suspect]
     Indication: PULMONARY ARTERIAL HYPERTENSION
     Dosage: INTRAVENOUS
     Route: 042
  2. AMIODARONE [Concomitant]
  3. AMBRISENTAN [Concomitant]
  4. FRUSEMIDE [Concomitant]
  5. SILDENAFIL CITRATE [Concomitant]

REACTIONS (4)
  - HYPOXIA [None]
  - T-LYMPHOCYTE COUNT INCREASED [None]
  - INTERSTITIAL LUNG DISEASE [None]
  - HYPOTENSION [None]
